FAERS Safety Report 15298607 (Version 1)
Quarter: 2018Q3

REPORT INFORMATION
  Report Type: Spontaneous
  Country: JP (occurrence: JP)
  Receive Date: 20180820
  Receipt Date: 20180820
  Transmission Date: 20181010
  Serious: Yes (Other)
  Sender: FDA-Public Use
  Company Number: JP-NAPPMUNDI-GBR-2017-0047904

PATIENT
  Sex: Male

DRUGS (1)
  1. OXIFAST [Suspect]
     Active Substance: OXYCODONE
     Indication: CANCER PAIN
     Dosage: 210 MG, DAILY
     Route: 041

REACTIONS (1)
  - Delirium [Recovering/Resolving]
